FAERS Safety Report 7016745-3 (Version None)
Quarter: 2010Q3

REPORT INFORMATION
  Report Type: 
  Country: None (occurrence: None)
  Receive Date: 20100909
  Receipt Date: 20100826
  Transmission Date: 20110219
  Serious: Yes (Life-Threatening, Hospitalization, Other)
  Sender: FDA-Public Use
  Company Number: 2010SP021386

PATIENT
  Age: 54 Year
  Sex: Female

DRUGS (2)
  1. SAPHRIS [Suspect]
     Indication: PSYCHOTIC DISORDER
     Dosage: 10 MG ; HS ; PO : 10 MG ; BID ; PO
     Route: 048
     Dates: start: 20100425, end: 20100428
  2. SAPHRIS [Suspect]
     Indication: PSYCHOTIC DISORDER
     Dosage: 10 MG ; HS ; PO : 10 MG ; BID ; PO
     Route: 048
     Dates: start: 20100215

REACTIONS (3)
  - INAPPROPRIATE SCHEDULE OF DRUG ADMINISTRATION [None]
  - INCORRECT ROUTE OF DRUG ADMINISTRATION [None]
  - NEUROLEPTIC MALIGNANT SYNDROME [None]
